FAERS Safety Report 11922621 (Version 1)
Quarter: 2016Q1

REPORT INFORMATION
  Report Type: Other
  Country: US (occurrence: US)
  Receive Date: 20160115
  Receipt Date: 20160115
  Transmission Date: 20160526
  Serious: Yes (Life-Threatening, Hospitalization, Other)
  Sender: FDA-Public Use
  Company Number: US-PIERRE FABRE-1046556

PATIENT
  Age: 28 Year
  Sex: Female

DRUGS (1)
  1. HEMANGEOL [Suspect]
     Active Substance: PROPRANOLOL HYDROCHLORIDE
     Indication: PRODUCT USED FOR UNKNOWN INDICATION

REACTIONS (8)
  - Seizure [Unknown]
  - Off label use [Unknown]
  - Overdose [Unknown]
  - Bradycardia [Unknown]
  - Toxicity to various agents [Unknown]
  - Hypothermia [Unknown]
  - Cerebrovascular disorder [Unknown]
  - Hypotension [Unknown]
